FAERS Safety Report 8920458 (Version 1)
Quarter: 2012Q4

REPORT INFORMATION
  Report Type: Report from Study
  Country: US (occurrence: US)
  Receive Date: 20121122
  Receipt Date: 20121122
  Transmission Date: 20130627
  Serious: Yes (Hospitalization)
  Sender: FDA-Public Use
  Company Number: US-ABBOTT-12P-163-1008256-00

PATIENT
  Age: 51 None
  Sex: Male
  Weight: 129.84 kg

DRUGS (9)
  1. HUMIRA [Suspect]
     Indication: PSORIATIC ARTHROPATHY
  2. HUMIRA [Suspect]
     Dates: start: 201112
  3. ALLOPURINOL [Concomitant]
     Indication: GOUT
  4. LISINOPRIL [Concomitant]
     Indication: HYPERTENSION
  5. MOBIC [Concomitant]
     Indication: PSORIATIC ARTHROPATHY
  6. FISH OIL [Concomitant]
     Indication: SUPPLEMENTATION THERAPY
  7. VITAMIN D NOS [Concomitant]
     Indication: VITAMIN SUPPLEMENTATION
  8. NIACIN [Concomitant]
     Indication: BLOOD CHOLESTEROL INCREASED
  9. HYDROCODONE [Concomitant]
     Indication: PAIN

REACTIONS (6)
  - Osteonecrosis [Recovered/Resolved]
  - Bronchitis [Recovered/Resolved]
  - Cellulitis [Recovered/Resolved]
  - Osteonecrosis [Recovered/Resolved]
  - Stress fracture [Recovered/Resolved]
  - Stress fracture [Recovered/Resolved]
